FAERS Safety Report 4280656-7 (Version None)
Quarter: 2004Q1

REPORT INFORMATION
  Report Type: 
  Country: None (occurrence: None)
  Receive Date: 20040128
  Receipt Date: 20040120
  Transmission Date: 20041129
  Serious: Yes (Other)
  Sender: FDA-Public Use
  Company Number: 04-01-0099

PATIENT
  Age: 34 Year
  Sex: Female

DRUGS (4)
  1. TRAMADOL HCL [Suspect]
     Indication: BACK PAIN
     Dosage: 100 MG - UP TO ORAL
     Route: 048
     Dates: start: 20000101, end: 20031222
  2. CO-PROXAMOL [Concomitant]
  3. SALBUTAMOL [Concomitant]
  4. SEREVENT [Concomitant]

REACTIONS (1)
  - ASTHMA [None]
